FAERS Safety Report 6996484-5 (Version None)
Quarter: 2010Q3

REPORT INFORMATION
  Report Type: 
  Country: None (occurrence: None)
  Receive Date: 20100918
  Receipt Date: 20090320
  Transmission Date: 20110219
  Serious: No
  Sender: FDA-Public Use
  Company Number: US-WYE-H08660709

PATIENT
  Age: 32 Year
  Sex: Female

DRUGS (3)
  1. EFFEXOR XR [Suspect]
     Dosage: DOSE TITRATED UP TO 300 MG DAILY
     Route: 048
     Dates: start: 20010101
  2. LAMICTAL [Concomitant]
  3. TRAZODONE HCL [Concomitant]

REACTIONS (1)
  - DRUG SCREEN POSITIVE [None]
